FAERS Safety Report 7736467-0 (Version None)
Quarter: 2011Q3

REPORT INFORMATION
  Report Type: 
  Country: None (occurrence: None)
  Receive Date: 20110908
  Receipt Date: 20110906
  Transmission Date: 20111222
  Serious: Yes (Hospitalization)
  Sender: FDA-Public Use
  Company Number: US-BRISTOL-MYERS SQUIBB COMPANY-16033797

PATIENT
  Age: 53 Year
  Sex: Female

DRUGS (10)
  1. ABILIFY [Suspect]
     Indication: PARANOIA
     Dosage: DOSE INCREASED TO 10MG/D ON 2SEP11
     Dates: start: 20110824
  2. LEVOTHYROXINE SODIUM [Concomitant]
  3. PROGESTIN INJ [Concomitant]
  4. ABILIFY [Suspect]
     Indication: AFFECTIVE DISORDER
     Dosage: DOSE INCREASED TO 10MG/D ON 2SEP11
     Dates: start: 20110824
  5. EFFEXOR [Concomitant]
  6. ENALAPRIL MALEATE [Concomitant]
  7. ABILIFY [Suspect]
     Indication: HALLUCINATION, AUDITORY
     Dosage: DOSE INCREASED TO 10MG/D ON 2SEP11
     Dates: start: 20110824
  8. REMERON [Concomitant]
  9. PREDNISONE [Concomitant]
  10. SENSIPAR [Concomitant]

REACTIONS (2)
  - PLATELET COUNT INCREASED [None]
  - HAEMATOCRIT DECREASED [None]
